FAERS Safety Report 7844265-2 (Version None)
Quarter: 2011Q4

REPORT INFORMATION
  Report Type: 
  Country: None (occurrence: None)
  Receive Date: 20111025
  Receipt Date: 20111012
  Transmission Date: 20120403
  Serious: Yes (Hospitalization, Other)
  Sender: FDA-Public Use
  Company Number: US-ELI_LILLY_AND_COMPANY-US201012005034

PATIENT
  Sex: Female
  Weight: 75.3 kg

DRUGS (17)
  1. SYNTHROID [Concomitant]
     Indication: THYROID DISORDER
     Dosage: 112 UG, QD
  2. AMBIEN [Concomitant]
  3. WELLBUTRIN [Concomitant]
     Indication: DEPRESSION
     Dosage: UNK, QD
  4. VITAMIN D [Concomitant]
     Dosage: UNK, QD
  5. CALCIUM + VITAMIN D [Concomitant]
     Dosage: UNK, TID
  6. SIMVASTATIN [Concomitant]
     Indication: BLOOD CHOLESTEROL
     Dosage: 20 UG, QD
  7. PREVACID [Concomitant]
     Indication: ABDOMINAL DISCOMFORT
     Dosage: UNK, QD
  8. HIDROCLOROTIAZIDA [Concomitant]
     Dosage: UNK, QD
  9. LORTAB [Concomitant]
     Indication: PAIN
     Dosage: UNK, PRN
  10. POTASSIUM [Concomitant]
     Dosage: UNK, OTHER
  11. ZOLPIDEM TARTRATE [Concomitant]
     Indication: SLEEP DISORDER
     Dosage: 10 UG, QD
  12. FORTEO [Suspect]
     Dosage: 20 UG, QD
     Route: 058
  13. CORTISONE ACETATE [Concomitant]
     Indication: PAIN
  14. FORTEO [Suspect]
     Indication: OSTEOPOROSIS
     Dosage: 20 UG, DAILY (1/D)
     Route: 058
     Dates: start: 20101122
  15. ATENOLOL [Concomitant]
     Indication: BLOOD PRESSURE
     Dosage: 25 MG, QD
  16. MOBIC [Concomitant]
  17. MULTI-VITAMIN [Concomitant]

REACTIONS (18)
  - JOINT DISLOCATION [None]
  - BRONCHITIS [None]
  - DYSPHONIA [None]
  - PAIN [None]
  - HIP FRACTURE [None]
  - AORTIC STENOSIS [None]
  - FEELING OF BODY TEMPERATURE CHANGE [None]
  - HYPERTENSION [None]
  - MYALGIA [None]
  - HYPOAESTHESIA [None]
  - CARPAL TUNNEL SYNDROME [None]
  - PAIN IN EXTREMITY [None]
  - ARTHRITIS [None]
  - FALL [None]
  - SKIN DISCOLOURATION [None]
  - MUSCLE SPASMS [None]
  - DIASTOLIC DYSFUNCTION [None]
  - BALANCE DISORDER [None]
